FAERS Safety Report 9052994 (Version 3)
Quarter: 2013Q2

REPORT INFORMATION
  Report Type: Spontaneous
  Country: US (occurrence: US)
  Receive Date: 20130208
  Receipt Date: 20130408
  Transmission Date: 20140414
  Serious: Yes (Hospitalization)
  Sender: FDA-Public Use
  Company Number: US-BIOGENIDEC-2013BI011854

PATIENT
  Age: 22 Year
  Sex: Female

DRUGS (6)
  1. TYSABRI [Suspect]
     Indication: MULTIPLE SCLEROSIS
     Route: 042
     Dates: start: 20130125
  2. IMMODIUM [Concomitant]
     Indication: DIARRHOEA
  3. CHOLECALCIFEROL [Concomitant]
  4. GABAPENTIN [Concomitant]
  5. OMEGA-3 FATTY ACIDS [Concomitant]
  6. VITAMIN D3 [Concomitant]

REACTIONS (16)
  - Asthenia [Not Recovered/Not Resolved]
  - Decreased appetite [Not Recovered/Not Resolved]
  - Urinary tract infection [Not Recovered/Not Resolved]
  - Drug intolerance [Recovered/Resolved]
  - Hypophagia [Recovered/Resolved]
  - Aphasia [Recovered/Resolved]
  - Vomiting [Recovered/Resolved]
  - Fatigue [Recovered/Resolved]
  - Diplopia [Recovered/Resolved]
  - Dehydration [Recovered/Resolved]
  - Weight decreased [Unknown]
  - Headache [Unknown]
  - Diarrhoea [Unknown]
  - Depression [Unknown]
  - Adjustment disorder [Unknown]
  - Vision blurred [Not Recovered/Not Resolved]
